FAERS Safety Report 24426477 (Version 1)
Quarter: 2024Q4

REPORT INFORMATION
  Report Type: Report from Study
  Country: CA (occurrence: CA)
  Receive Date: 20241011
  Receipt Date: 20241011
  Transmission Date: 20250114
  Serious: No
  Sender: ROCHE
  Company Number: CA-ROCHE-10000057597

PATIENT
  Sex: Female

DRUGS (5)
  1. OCREVUS [Suspect]
     Active Substance: OCRELIZUMAB
     Indication: Relapsing-remitting multiple sclerosis
     Dosage: MORE DOSAGE INFORMATION IS 300 MG AT DAY 0 AND 14, THEN 600 MG EVERY 6 MONTH
     Route: 042
     Dates: start: 20190507
  2. BUPROPION [Concomitant]
     Active Substance: BUPROPION
     Dosage: MORE DOSAGE INFORMATION IS 450MG
  3. CLONAZEPAM [Concomitant]
     Active Substance: CLONAZEPAM
     Dosage: MORE DOSAGE INFORMATION IS 3.75MG
  4. PREGABALIN [Concomitant]
     Active Substance: PREGABALIN
     Dosage: MORE DOSAGE INFORMATION IS 75MG
  5. WELLBUTRIN [Concomitant]
     Active Substance: BUPROPION HYDROCHLORIDE

REACTIONS (11)
  - Bladder disorder [Not Recovered/Not Resolved]
  - Uterine disorder [Not Recovered/Not Resolved]
  - Constipation [Recovered/Resolved]
  - Iron deficiency [Not Recovered/Not Resolved]
  - Depression [Unknown]
  - Anxiety [Unknown]
  - Sleep apnoea syndrome [Recovering/Resolving]
  - Restless legs syndrome [Not Recovered/Not Resolved]
  - Fatigue [Not Recovered/Not Resolved]
  - COVID-19 [Recovered/Resolved]
  - Cystitis [Recovered/Resolved]
